FAERS Safety Report 15748653 (Version 1)
Quarter: 2018Q4

REPORT INFORMATION
  Report Type: Report from Study
  Country: None (occurrence: BE)
  Receive Date: 20181221
  Receipt Date: 20181221
  Transmission Date: 20190205
  Serious: Yes (Other)
  Sender: FDA-Public Use
  Company Number: BE-ABBVIE-18S-013-2597997-00

PATIENT
  Sex: Male

DRUGS (3)
  1. DUODOPA [Suspect]
     Active Substance: CARBIDOPA\LEVODOPA
     Indication: PARKINSON^S DISEASE
     Dosage: MD=10ML, CD=3.1ML/HR DURING 16HRS, ED=1.5ML
     Route: 050
     Dates: start: 20170612, end: 20170615
  2. DUODOPA [Suspect]
     Active Substance: CARBIDOPA\LEVODOPA
     Dosage: DOSES CONTINUOUSLY MONITORED AND ADAPTED
     Route: 050
     Dates: start: 20170615, end: 20171206
  3. DUODOPA [Suspect]
     Active Substance: CARBIDOPA\LEVODOPA
     Dosage: MD=5ML, CD=BETWEEN 3.4 AND 6ML/HR DURING 16HRS, ED=BETWEEN 2.5 AND 5ML
     Route: 050
     Dates: start: 20171206

REACTIONS (3)
  - Alcohol poisoning [Recovered/Resolved]
  - Device alarm issue [Recovered/Resolved]
  - Malaise [Recovered/Resolved]
